FAERS Safety Report 4957846-0 (Version None)
Quarter: 2006Q1

REPORT INFORMATION
  Report Type: 
  Country: None (occurrence: None)
  Receive Date: 20060324
  Receipt Date: 20060309
  Transmission Date: 20060701
  Serious: Yes (Hospitalization)
  Sender: FDA-Public Use
  Company Number: CED-AE-06-001

PATIENT
  Age: 50 Year
  Sex: Male

DRUGS (1)
  1. METHIMAZOLE [Suspect]
     Indication: HYPERTHYROIDISM
     Dosage: 30 MG - TID - ORAL
     Route: 048

REACTIONS (5)
  - DRUG HYPERSENSITIVITY [None]
  - LIVER DISORDER [None]
  - PNEUMOCOCCAL SEPSIS [None]
  - PNEUMONIA PNEUMOCOCCAL [None]
  - RED BLOOD CELL COUNT DECREASED [None]
